FAERS Safety Report 6932693-9 (Version None)
Quarter: 2010Q3

REPORT INFORMATION
  Report Type: 
  Country: None (occurrence: None)
  Receive Date: 20100819
  Receipt Date: 20081209
  Transmission Date: 20110219
  Serious: Yes (Hospitalization)
  Sender: FDA-Public Use
  Company Number: KR-GILEAD-2008-0019473

PATIENT
  Age: 42 Year
  Sex: Male

DRUGS (2)
  1. ADEFOVIR DIPIVOXIL KIT [Suspect]
     Indication: HEPATITIS B
  2. RAMIBUDIN [Concomitant]

REACTIONS (3)
  - HYPOPHOSPHATAEMIA [None]
  - NEPHROPATHY TOXIC [None]
  - OSTEOMALACIA [None]
